FAERS Safety Report 13902168 (Version 1)
Quarter: 2017Q3

REPORT INFORMATION
  Report Type: Spontaneous
  Country: US (occurrence: US)
  Receive Date: 20170824
  Receipt Date: 20170824
  Transmission Date: 20171127
  Serious: No
  Sender: FDA-Public Use
  Company Number: US-ROCHE-1130038

PATIENT
  Sex: Female
  Weight: 107.96 kg

DRUGS (4)
  1. HEP-LOCK [Concomitant]
     Active Substance: HEPARIN SODIUM
     Dosage: 500 UNITS (X1 ON D1)
     Route: 042
  2. HERCEPTIN [Suspect]
     Active Substance: TRASTUZUMAB
     Indication: BREAST CANCER
     Dosage: (X1 ON D1)
     Route: 042
     Dates: start: 20001227
  3. HERCEPTIN [Suspect]
     Active Substance: TRASTUZUMAB
     Dosage: X1 ON D1, D8, D15, D22 (CYCLE 13)
     Route: 042
     Dates: start: 20010524
  4. NAPROSYN [Concomitant]
     Active Substance: NAPROXEN
     Route: 065

REACTIONS (2)
  - Pain in extremity [Unknown]
  - Asthenia [Unknown]
